FAERS Safety Report 16867165 (Version 1)
Quarter: 2019Q3

REPORT INFORMATION
  Report Type: Spontaneous
  Country: GB (occurrence: GB)
  Receive Date: 20190930
  Receipt Date: 20190930
  Transmission Date: 20191005
  Serious: Yes (Death, Hospitalization)
  Sender: FDA-Public Use
  Company Number: GB-TEVA-2019-GB-1113949

PATIENT
  Age: 57 Year
  Sex: Male

DRUGS (4)
  1. RISPERIDONE. [Suspect]
     Active Substance: RISPERIDONE
     Indication: SEIZURE
     Dosage: 12 MG PER DAY
     Route: 065
     Dates: start: 2004, end: 201908
  2. AMLODIPINE [Concomitant]
     Active Substance: AMLODIPINE BESYLATE
     Indication: HYPERTENSION
  3. ZARONTIN [Concomitant]
     Active Substance: ETHOSUXIMIDE
     Dosage: 780 MG PER DAY
  4. RAMIPRIL. [Concomitant]
     Active Substance: RAMIPRIL
     Indication: HYPERTENSION

REACTIONS (9)
  - Colon cancer [Fatal]
  - Somnolence [Fatal]
  - Abnormal weight gain [Fatal]
  - Gynaecomastia [Fatal]
  - Feeling hot [Fatal]
  - Hyperhidrosis [Fatal]
  - Dyskinesia [Fatal]
  - Pollakiuria [Fatal]
  - Seizure [Fatal]
